FAERS Safety Report 25489319 (Version 3)
Quarter: 2025Q3

REPORT INFORMATION
  Report Type: Spontaneous
  Country: US (occurrence: US)
  Receive Date: 20250627
  Receipt Date: 20250722
  Transmission Date: 20251021
  Serious: No
  Sender: SANOFI AVENTIS
  Company Number: US-SA-2025SA182715

PATIENT
  Age: 72 Year
  Sex: Female

DRUGS (4)
  1. DUPIXENT [Suspect]
     Active Substance: DUPILUMAB
     Indication: Asthma
     Route: 058
     Dates: start: 202506, end: 202506
  2. DUPIXENT [Suspect]
     Active Substance: DUPILUMAB
     Dosage: 300 MG, QOW
     Route: 058
     Dates: start: 202506
  3. OHTUVAYRE [Concomitant]
     Active Substance: ENSIFENTRINE
  4. VIOS [Concomitant]

REACTIONS (12)
  - Heart rate increased [Unknown]
  - Injection site discolouration [Unknown]
  - Limb discomfort [Unknown]
  - Nausea [Unknown]
  - Pain in jaw [Unknown]
  - Fatigue [Unknown]
  - Gait disturbance [Unknown]
  - Headache [Unknown]
  - Diarrhoea [Unknown]
  - Myalgia [Unknown]
  - Injection site bruising [Unknown]
  - Arthralgia [Unknown]

NARRATIVE: CASE EVENT DATE: 20250101
